FAERS Safety Report 9068988 (Version 1)
Quarter: 2013Q1

REPORT INFORMATION
  Report Type: Spontaneous
  Country: US (occurrence: US)
  Receive Date: 20130128
  Receipt Date: 20130128
  Transmission Date: 20140127
  Serious: Yes (Other)
  Sender: FDA-Public Use
  Company Number: US-PFIZER INC-2013024469

PATIENT
  Age: 78 Year
  Sex: Female
  Weight: 88.44 kg

DRUGS (2)
  1. PREPARATION H [Suspect]
     Indication: HAEMORRHOIDS
     Dosage: UNK
     Dates: start: 20130112, end: 20130116
  2. METFORMIN [Concomitant]
     Indication: DIABETES MELLITUS
     Dosage: UNK

REACTIONS (2)
  - Urinary tract infection [Unknown]
  - Bladder pain [Unknown]
